FAERS Safety Report 14392710 (Version 1)
Quarter: 2018Q1

REPORT INFORMATION
  Report Type: Spontaneous
  Country: US (occurrence: US)
  Receive Date: 20180116
  Receipt Date: 20180116
  Transmission Date: 20180509
  Serious: No
  Sender: FDA-Public Use
  Company Number: US-SHIRE-US201736475

PATIENT
  Sex: Female
  Weight: 81.63 kg

DRUGS (2)
  1. CUVITRU [Suspect]
     Active Substance: HUMAN IMMUNOGLOBULIN G
     Dosage: UNK
  2. CUVITRU [Suspect]
     Active Substance: HUMAN IMMUNOGLOBULIN G
     Indication: IMMUNODEFICIENCY COMMON VARIABLE
     Dosage: 22 G, 1X/2WKS
     Route: 058
     Dates: start: 20171128

REACTIONS (3)
  - Headache [Unknown]
  - Blood pressure increased [Unknown]
  - Heart rate increased [Unknown]
